FAERS Safety Report 21334246 (Version 2)
Quarter: 2022Q3

REPORT INFORMATION
  Report Type: Report from Study
  Country: JP (occurrence: JP)
  Receive Date: 20220914
  Receipt Date: 20220926
  Transmission Date: 20221027
  Serious: Yes (Death, Hospitalization, Other)
  Sender: FDA-Public Use
  Company Number: JP-OTSUKA-2022_041923

PATIENT
  Age: 58 Year
  Sex: Male
  Weight: 56.1 kg

DRUGS (15)
  1. PONATINIB [Suspect]
     Active Substance: PONATINIB
     Indication: Small cell lung cancer
     Dosage: 45 MILLIGRAM, QD
     Route: 065
     Dates: start: 20220730, end: 20220801
  2. PONATINIB [Suspect]
     Active Substance: PONATINIB
     Dosage: 30 MILLIGRAM, QD
     Route: 065
     Dates: start: 20220810, end: 20220813
  3. SYMPROIC [Suspect]
     Active Substance: NALDEMEDINE
     Indication: Pain
     Dosage: 0.2 MILLIGRAM, QD
     Route: 048
     Dates: end: 20220812
  4. LOXOPROFEN SODIUM [Suspect]
     Active Substance: LOXOPROFEN SODIUM
     Indication: Pain
     Dosage: 60 MILLIGRAM
     Route: 048
     Dates: start: 20220728, end: 20220811
  5. HYDROMORPHONE HYDROCHLORIDE [Suspect]
     Active Substance: HYDROMORPHONE HYDROCHLORIDE
     Indication: Pain
     Dosage: 4 MILLIGRAM, QD
     Route: 048
     Dates: start: 20220730, end: 20220812
  6. PREDNISOLONE [Concomitant]
     Active Substance: PREDNISOLONE
     Indication: Dermatomyositis
     Dosage: 15 MILLIGRAM, QD
     Route: 048
  7. SULFAMETHOXAZOLE\TRIMETHOPRIM [Concomitant]
     Active Substance: SULFAMETHOXAZOLE\TRIMETHOPRIM
     Indication: Infection prophylaxis
     Dosage: 0.5 GRAM, QD
     Route: 048
  8. NEXIUM [Concomitant]
     Active Substance: ESOMEPRAZOLE MAGNESIUM
     Indication: Gastritis prophylaxis
     Dosage: 20 MILLIGRAM, QD
     Route: 048
  9. Pursennid [Concomitant]
     Indication: Constipation
     Dosage: 24 MILLIGRAM, QD
     Route: 048
  10. MAGNESIUM OXIDE [Concomitant]
     Active Substance: MAGNESIUM OXIDE
     Indication: Constipation
     Dosage: 500 MILLIGRAM, BID
     Route: 048
  11. TAPENTADOL HYDROCHLORIDE [Concomitant]
     Active Substance: TAPENTADOL HYDROCHLORIDE
     Indication: Pain
     Dosage: 15 MILLIGRAM, TID
     Route: 048
     Dates: start: 20220813
  12. Oxinorm [Concomitant]
     Indication: Pain
     Dosage: UNK
     Route: 065
     Dates: start: 20220813
  13. URSO [Concomitant]
     Active Substance: URSODIOL
     Indication: Hepatic function abnormal
     Dosage: 50 MILLIGRAM, QD
     Route: 048
     Dates: start: 20220802, end: 20220810
  14. GLUTATHIONE [Concomitant]
     Active Substance: GLUTATHIONE
     Indication: Hepatic function abnormal
     Dosage: 100 MILLIGRAM, BID
     Route: 048
     Dates: start: 20220805, end: 20220810
  15. BONALON [Concomitant]
     Active Substance: ALENDRONATE SODIUM
     Indication: Osteoporosis
     Dosage: UNK
     Route: 065
     Dates: end: 20220805

REACTIONS (2)
  - Small cell lung cancer [Fatal]
  - Aspartate aminotransferase increased [Not Recovered/Not Resolved]

NARRATIVE: CASE EVENT DATE: 20220814
